FAERS Safety Report 12519708 (Version 3)
Quarter: 2016Q3

REPORT INFORMATION
  Report Type: Spontaneous
  Country: US (occurrence: US)
  Receive Date: 20160630
  Receipt Date: 20160913
  Transmission Date: 20161109
  Serious: No
  Sender: FDA-Public Use
  Company Number: US-RECKITT BENCKISER HEALTHCARE INT LIMITED-RB-85255-2016

PATIENT
  Age: 42 Year
  Sex: Female

DRUGS (3)
  1. BENZONATATE. [Concomitant]
     Active Substance: BENZONATATE
     Indication: PHARYNGITIS STREPTOCOCCAL
     Dosage: UNK
     Route: 065
  2. PENICILLIN                         /00000901/ [Concomitant]
     Active Substance: PENICILLIN G
     Indication: PHARYNGITIS STREPTOCOCCAL
     Dosage: UNK
     Route: 065
  3. MUCINEX [Suspect]
     Active Substance: GUAIFENESIN
     Indication: PRODUCT USED FOR UNKNOWN INDICATION
     Dosage: 1 DF, UNK, 1 TABLET EVERY 4-6 HOURS FOR A TOTAL OF AT LEAST 5 TABLETS IN THE LAST 24 HOURS
     Route: 065
     Dates: start: 20160425

REACTIONS (2)
  - Somnolence [Recovered/Resolved]
  - Accidental overdose [Recovered/Resolved]

NARRATIVE: CASE EVENT DATE: 20160425
